FAERS Safety Report 6631717-6 (Version None)
Quarter: 2010Q1

REPORT INFORMATION
  Report Type: 
  Country: None (occurrence: None)
  Receive Date: 20100312
  Receipt Date: 20100302
  Transmission Date: 20100710
  Serious: Yes (Other)
  Sender: FDA-Public Use
  Company Number: US-PFIZER INC-2009311977

PATIENT
  Sex: Female

DRUGS (1)
  1. SUTENT [Suspect]
     Indication: THYROID CANCER
     Dosage: 25 MG, DAILY, CYCLE 4/2

REACTIONS (2)
  - RENAL FAILURE [None]
  - STOMATITIS [None]
